FAERS Safety Report 10150665 (Version 1)
Quarter: 2014Q2

REPORT INFORMATION
  Report Type: Spontaneous
  Country: US (occurrence: US)
  Receive Date: 20140502
  Receipt Date: 20140502
  Transmission Date: 20141212
  Serious: No
  Sender: FDA-Public Use
  Company Number: US-009507513-1405USA000493

PATIENT
  Age: 52 Year
  Sex: Female

DRUGS (2)
  1. PEGINTRON [Suspect]
     Indication: HEPATITIS C
     Dosage: 150 MICROGRAM, QW
     Dates: start: 201403
  2. XANAX [Concomitant]

REACTIONS (4)
  - Limb injury [Unknown]
  - Haemorrhage [Unknown]
  - Drug dose omission [Unknown]
  - Product quality issue [Unknown]
